FAERS Safety Report 8797161 (Version 3)
Quarter: 2015Q1

REPORT INFORMATION
  Report Type: Report from Study
  Country: US (occurrence: US)
  Receive Date: 20120919
  Receipt Date: 20150302
  Transmission Date: 20150721
  Serious: Yes (Death)
  Sender: FDA-Public Use
  Company Number: US-ROCHE-1103412

PATIENT
  Age: 76 Year
  Sex: Male

DRUGS (5)
  1. ARANESP [Concomitant]
     Active Substance: DARBEPOETIN ALFA
     Route: 065
  2. ZOMETA [Concomitant]
     Active Substance: ZOLEDRONIC ACID
  3. BENADRYL [Concomitant]
     Active Substance: DIPHENHYDRAMINE HYDROCHLORIDE
     Route: 065
  4. AVASTIN [Suspect]
     Active Substance: BEVACIZUMAB
     Indication: MALIGNANT RESPIRATORY TRACT NEOPLASM
     Route: 042
  5. TARCEVA [Suspect]
     Active Substance: ERLOTINIB HYDROCHLORIDE
     Indication: MALIGNANT RESPIRATORY TRACT NEOPLASM
     Route: 048

REACTIONS (1)
  - Death [Fatal]

NARRATIVE: CASE EVENT DATE: 20080229
